FAERS Safety Report 8852991 (Version 1)
Quarter: 2012Q4

REPORT INFORMATION
  Report Type: Report from Study
  Country: US (occurrence: US)
  Receive Date: 20121022
  Receipt Date: 20121022
  Transmission Date: 20130627
  Serious: Yes (Other)
  Sender: FDA-Public Use
  Company Number: US-MERCK-1210USA009180

PATIENT
  Age: 64 None
  Sex: Female
  Weight: 79.82 kg

DRUGS (12)
  1. ZETIA [Suspect]
     Dosage: UNK
  2. NIASPAN [Suspect]
     Indication: BLOOD CHOLESTEROL INCREASED
     Dosage: 1000 mg, hs
     Route: 048
     Dates: start: 201106, end: 20120728
  3. NIASPAN [Suspect]
     Indication: FAMILIAL RISK FACTOR
  4. UNSPECIFIED INGREDIENT [Suspect]
     Indication: HERPES ZOSTER
     Dosage: UNK
     Route: 042
     Dates: start: 201207
  5. CRESTOR [Concomitant]
     Dosage: 40 mg, UNK
     Route: 048
  6. ASPIRIN [Concomitant]
     Dosage: 81 mg, qd
     Route: 048
  7. RITALIN [Concomitant]
     Dosage: 10 mg, UNK
     Route: 048
  8. PENTASA [Concomitant]
     Dosage: 500 mg, UNK
     Route: 048
  9. DEXILANT [Concomitant]
     Route: 048
  10. ERGOCALCIFEROL [Concomitant]
     Dosage: 50000 IU, UNK
     Route: 048
  11. BENADRYL [Concomitant]
     Dosage: 1 DF, UNK
     Route: 048
  12. QVAR [Concomitant]
     Indication: DYSPNOEA
     Dosage: UNK, prn

REACTIONS (8)
  - Herpes zoster [Recovered/Resolved]
  - Drug hypersensitivity [Recovered/Resolved]
  - Pruritus allergic [Unknown]
  - Hot flush [Recovered/Resolved]
  - Pruritus [Unknown]
  - Flushing [Unknown]
  - Middle insomnia [Unknown]
  - Blood cholesterol increased [Unknown]
